FAERS Safety Report 6029186-2 (Version None)
Quarter: 2009Q1

REPORT INFORMATION
  Report Type: 
  Country: None (occurrence: None)
  Receive Date: 20090106
  Receipt Date: 20081218
  Transmission Date: 20090719
  Serious: No
  Sender: FDA-Public Use
  Company Number: US-B.I. PHARMACEUTICALS,INC./RIDGEFIELD-2008-BP-19012BP

PATIENT
  Sex: Male

DRUGS (5)
  1. FLOMAX [Suspect]
     Indication: PROSTATOMEGALY
     Dosage: .4MG
     Route: 048
     Dates: start: 20080101
  2. GLIPIZIDE [Concomitant]
     Indication: DIABETES MELLITUS
     Route: 048
     Dates: start: 20080601
  3. LISINOPRIL [Concomitant]
     Indication: HYPERTENSION
     Dosage: 40MG
     Route: 048
  4. ALPRAZOLAM [Concomitant]
     Indication: ANXIETY
     Route: 048
  5. FINASTERIDE [Concomitant]
     Indication: PROSTATOMEGALY
     Dates: start: 20070101, end: 20081001

REACTIONS (1)
  - HYPERTENSION [None]
